FAERS Safety Report 6266311-2 (Version None)
Quarter: 2009Q3

REPORT INFORMATION
  Report Type: 
  Country: None (occurrence: None)
  Receive Date: 20090713
  Receipt Date: 20090703
  Transmission Date: 20100115
  Serious: Yes (Hospitalization, Other)
  Sender: FDA-Public Use
  Company Number: PHHY2008BR06189

PATIENT
  Sex: Female
  Weight: 65 kg

DRUGS (5)
  1. ACLASTA [Suspect]
     Indication: OSTEOPOROSIS
     Dosage: 5 MG/100 ML
  2. SYMBICORT [Concomitant]
     Indication: BRONCHITIS
     Dosage: UNK
  3. CALCORT [Concomitant]
     Indication: BRONCHITIS
  4. PREDSIM [Concomitant]
     Indication: BRONCHITIS
  5. METICORTEN [Concomitant]
     Indication: BRONCHITIS

REACTIONS (7)
  - BLOOD CALCIUM DECREASED [None]
  - BLOOD MAGNESIUM DECREASED [None]
  - BLOOD POTASSIUM DECREASED [None]
  - FACIAL NERVE DISORDER [None]
  - HEAD DEFORMITY [None]
  - MUSCLE RIGIDITY [None]
  - NEUROLOGICAL SYMPTOM [None]
